FAERS Safety Report 5318859-2 (Version None)
Quarter: 2007Q2

REPORT INFORMATION
  Report Type: 
  Country: None (occurrence: None)
  Receive Date: 20070508
  Receipt Date: 20070426
  Transmission Date: 20071010
  Serious: Yes (Other)
  Sender: FDA-Public Use
  Company Number: JP-ROCHE-494086

PATIENT
  Age: 12 Year
  Sex: Male

DRUGS (8)
  1. TAMIFLU [Suspect]
     Route: 048
     Dates: start: 20070220, end: 20070220
  2. DEPROMEL [Concomitant]
     Route: 048
  3. DOGMATYL [Concomitant]
     Route: 048
  4. HALOPERIDOL [Concomitant]
     Route: 048
  5. COCARL [Concomitant]
     Route: 048
     Dates: start: 20070220
  6. HUSCODE [Concomitant]
     Route: 048
     Dates: start: 20070220
  7. LYSOZYME [Concomitant]
     Route: 048
     Dates: start: 20070220
  8. DEXCHLORPHENIRAMINE MALEATE [Concomitant]
     Route: 048
     Dates: start: 20070220

REACTIONS (4)
  - CONFUSIONAL STATE [None]
  - DEPRESSION [None]
  - HALLUCINATION [None]
  - OBSESSIVE-COMPULSIVE DISORDER [None]
